FAERS Safety Report 21390742 (Version 5)
Quarter: 2023Q2

REPORT INFORMATION
  Report Type: Spontaneous
  Country: US (occurrence: US)
  Receive Date: 20220929
  Receipt Date: 20230629
  Transmission Date: 20230722
  Serious: No
  Sender: FDA-Public Use
  Company Number: US-PFIZER INC-202201192665

PATIENT
  Age: 76 Year
  Sex: Female
  Weight: 53.832 kg

DRUGS (2)
  1. IBRANCE [Suspect]
     Active Substance: PALBOCICLIB
     Indication: Breast cancer female
     Dosage: ONCE A DAY FOR THREE WEEKS AND THEN OFF A WEEK
     Route: 048
  2. IBRANCE [Suspect]
     Active Substance: PALBOCICLIB
     Dosage: DAILY, 21 DAYS, OFF 7
     Route: 048

REACTIONS (2)
  - Full blood count decreased [Unknown]
  - Neutrophil count decreased [Recovered/Resolved]
